FAERS Safety Report 8326844-1 (Version None)
Quarter: 2012Q2

REPORT INFORMATION
  Report Type: 
  Country: None (occurrence: None)
  Receive Date: 20120501
  Receipt Date: 20120423
  Transmission Date: 20120825
  Serious: Yes (Other)
  Sender: FDA-Public Use
  Company Number: TR-TEVA-335464ISR

PATIENT
  Age: 6 Year
  Sex: Female

DRUGS (3)
  1. DACTINOMYCIN [Concomitant]
     Indication: NEPHROBLASTOMA
     Dosage: 15 GAMMA/KG/DAY FOR 5 CONSECUTIVE DAYS EVERY 6 WEEKS FOR 6 MONTHS
     Route: 065
  2. VINCRISTINE [Suspect]
     Indication: NEPHROBLASTOMA
     Dosage: 1.4 MG/M2/WEEK
     Route: 042
  3. VINCRISTINE [Suspect]
     Dosage: 1 MG/DAY FOR 4 CONSECUTIVE DAYS
     Route: 030

REACTIONS (5)
  - INCORRECT ROUTE OF DRUG ADMINISTRATION [None]
  - PARAESTHESIA [None]
  - ACCIDENTAL OVERDOSE [None]
  - CONSTIPATION [None]
  - BACK PAIN [None]
